FAERS Safety Report 8005686-0 (Version None)
Quarter: 2011Q4

REPORT INFORMATION
  Report Type: 
  Country: None (occurrence: None)
  Receive Date: 20111223
  Receipt Date: 20111221
  Transmission Date: 20120403
  Serious: Yes (Other)
  Sender: FDA-Public Use
  Company Number: US-ROCHE-802963

PATIENT
  Sex: Male
  Weight: 49.486 kg

DRUGS (1)
  1. ACCUTANE [Suspect]
     Indication: ACNE
     Route: 065

REACTIONS (15)
  - IRRITABLE BOWEL SYNDROME [None]
  - GASTROINTESTINAL DISORDER [None]
  - HYPERTENSION [None]
  - COLITIS ULCERATIVE [None]
  - DEPRESSION [None]
  - ANAEMIA [None]
  - OSTEOPOROSIS [None]
  - INTESTINAL HAEMORRHAGE [None]
  - HAEMORRHAGE [None]
  - GASTROOESOPHAGEAL REFLUX DISEASE [None]
  - NAUSEA [None]
  - ARTHRITIS [None]
  - INFLAMMATORY BOWEL DISEASE [None]
  - GASTRIC DISORDER [None]
  - CROHN'S DISEASE [None]
